FAERS Safety Report 7860529-0 (Version None)
Quarter: 2011Q4

REPORT INFORMATION
  Report Type: 
  Country: None (occurrence: None)
  Receive Date: 20111027
  Receipt Date: 20111024
  Transmission Date: 20120403
  Serious: No
  Sender: FDA-Public Use
  Company Number: US-PFIZER INC-2011258407

PATIENT
  Sex: Female
  Weight: 58.957 kg

DRUGS (5)
  1. ACETYLSALICYLIC ACID [Concomitant]
     Indication: PAIN
  2. ACETYLSALICYLIC ACID [Concomitant]
     Indication: HEADACHE
     Dosage: UNK, 1X/DAY
  3. IBUPROFEN (ADVIL) [Suspect]
     Indication: HEADACHE
     Dosage: 200 MG, AS NEEDED
     Route: 048
     Dates: end: 20111001
  4. IBUPROFEN (ADVIL) [Suspect]
     Indication: PAIN
  5. CALCIUM [Suspect]

REACTIONS (3)
  - DRUG INEFFECTIVE [None]
  - BODY HEIGHT DECREASED [None]
  - TINEA PEDIS [None]
